FAERS Safety Report 5249926-X (Version None)
Quarter: 2007Q1

REPORT INFORMATION
  Report Type: 
  Country: None (occurrence: None)
  Receive Date: 20070228
  Receipt Date: 20060104
  Transmission Date: 20070707
  Serious: No
  Sender: FDA-Public Use
  Company Number: US-GLAXOSMITHKLINE-A0587762A

PATIENT
  Age: 62 Year
  Sex: Female

DRUGS (2)
  1. LAMICTAL [Suspect]
     Indication: BIPOLAR DISORDER
     Route: 048
     Dates: start: 20050101, end: 20050801
  2. LITHIUM CARBONATE [Concomitant]

REACTIONS (6)
  - DRY MOUTH [None]
  - DYSPHAGIA [None]
  - GLOSSODYNIA [None]
  - GOITRE [None]
  - MASTICATION DISORDER [None]
  - SWOLLEN TONGUE [None]
